FAERS Safety Report 10042803 (Version 3)
Quarter: 2015Q4

REPORT INFORMATION
  Report Type: Report from Study
  Country: JP (occurrence: JP)
  Receive Date: 20140327
  Receipt Date: 20151016
  Transmission Date: 20160304
  Serious: Yes (Life-Threatening, Hospitalization, Other)
  Sender: FDA-Public Use
  Company Number: JP-GILEAD-2014-0097674

PATIENT
  Age: 41 Year
  Sex: Female
  Weight: 39 kg

DRUGS (19)
  1. SLOW-K [Concomitant]
     Active Substance: POTASSIUM CHLORIDE
     Indication: PROPHYLAXIS
     Dosage: UNK
     Route: 048
  2. SAMSCA [Concomitant]
     Active Substance: TOLVAPTAN
     Dosage: UNK
  3. PREDONINE [Suspect]
     Active Substance: PREDNISOLONE\PREDNISOLONE ACETATE\PREDNISOLONE SODIUM SUCCINATE
     Dosage: 15 MG, QD
  4. KERATINAMIN KOWA                   /05674101/ [Concomitant]
     Dosage: UNK
  5. AMBRISENTAN [Suspect]
     Active Substance: AMBRISENTAN
     Dosage: 2.5 MG, QD
     Route: 048
     Dates: start: 20120521, end: 20120522
  6. PRIMPERAN [Concomitant]
     Active Substance: METOCLOPRAMIDE HYDROCHLORIDE
     Dosage: UNK
     Route: 048
     Dates: start: 20120214
  7. FUROSEMIDE. [Concomitant]
     Active Substance: FUROSEMIDE
     Dosage: UNK
  8. GLAKAY [Concomitant]
     Active Substance: MENATETRENONE
     Dosage: UNK
  9. AMBRISENTAN [Suspect]
     Active Substance: AMBRISENTAN
     Indication: PULMONARY ARTERIAL HYPERTENSION
     Dosage: 5 MG, QD
     Route: 048
     Dates: start: 20120611
  10. PREDONINE [Suspect]
     Active Substance: PREDNISOLONE\PREDNISOLONE ACETATE\PREDNISOLONE SODIUM SUCCINATE
     Indication: PRODUCT USED FOR UNKNOWN INDICATION
     Route: 048
  11. MARZULENE                          /00317302/ [Concomitant]
     Dosage: UNK
  12. GASMOTIN [Concomitant]
     Active Substance: MOSAPRIDE CITRATE
     Route: 048
     Dates: start: 20120809
  13. NEXIUM [Concomitant]
     Active Substance: ESOMEPRAZOLE MAGNESIUM
     Dosage: UNK
  14. AMBRISENTAN [Suspect]
     Active Substance: AMBRISENTAN
     Dosage: 2.5 MG, QD
     Route: 048
     Dates: start: 20120612
  15. PARIET [Concomitant]
     Active Substance: RABEPRAZOLE SODIUM
     Dosage: UNK
     Route: 048
  16. FERROMIA [Concomitant]
     Active Substance: FERROUS CITRATE
     Dosage: UNK
  17. RIKKUNSHITOU [Concomitant]
  18. ALFAROL [Concomitant]
     Active Substance: ALFACALCIDOL
     Indication: OSTEOPOROSIS PROPHYLAXIS
     Dosage: UNK
     Route: 048
  19. LIVACT                             /00847901/ [Concomitant]
     Active Substance: ISOLEUCINE\LEUCINE\VALINE
     Dosage: UNK

REACTIONS (13)
  - Systemic candida [Recovered/Resolved]
  - Haemorrhagic anaemia [Recovering/Resolving]
  - Oesophageal varices haemorrhage [Recovering/Resolving]
  - Epilepsy [Recovering/Resolving]
  - Subdural haematoma [Recovering/Resolving]
  - Haemorrhagic anaemia [Recovering/Resolving]
  - Hepatic function abnormal [Recovering/Resolving]
  - Oesophageal varices haemorrhage [Recovering/Resolving]
  - Haemorrhagic anaemia [Recovering/Resolving]
  - Haemorrhagic anaemia [Recovering/Resolving]
  - Ascites [Recovering/Resolving]
  - Oesophageal varices haemorrhage [Recovering/Resolving]
  - Oesophageal varices haemorrhage [Recovering/Resolving]

NARRATIVE: CASE EVENT DATE: 20120611
